FAERS Safety Report 10236774 (Version 1)
Quarter: 2014Q2

REPORT INFORMATION
  Report Type: Spontaneous
  Country: DK (occurrence: DK)
  Receive Date: 20140613
  Receipt Date: 20140613
  Transmission Date: 20141212
  Serious: Yes (Death)
  Sender: FDA-Public Use
  Company Number: DK-GLAXOSMITHKLINE-B1003390A

PATIENT
  Age: 1 Year
  Sex: Female
  Weight: 9 kg

DRUGS (11)
  1. PROLEUKIN [Suspect]
     Indication: DISSEMINATED TUBERCULOSIS
     Dosage: .01MU PER DAY
     Route: 058
     Dates: start: 20130822
  2. VOLTAREN [Suspect]
     Indication: PAIN
     Dosage: 12.5MG AS REQUIRED
     Route: 054
     Dates: start: 201305
  3. ZOVIR [Suspect]
     Indication: COMBINED IMMUNODEFICIENCY
     Dosage: 2.5ML TWICE PER DAY
     Route: 048
     Dates: start: 201302
  4. PARACETAMOL [Suspect]
     Indication: PRODUCT USED FOR UNKNOWN INDICATION
     Dosage: 5ML AS REQUIRED
     Route: 048
     Dates: start: 201302
  5. BIKLIN [Suspect]
     Indication: DISSEMINATED TUBERCULOSIS
     Dosage: 175MG PER DAY
     Route: 042
     Dates: start: 20140524
  6. AVELOX [Suspect]
     Indication: DISSEMINATED TUBERCULOSIS
     Dosage: 90MG PER DAY
     Route: 042
     Dates: start: 20130524
  7. ISONIAZIDE [Suspect]
     Indication: DISSEMINATED TUBERCULOSIS
     Dosage: 135MG PER DAY
     Route: 042
     Dates: start: 20130524
  8. MYAMBUTOL [Suspect]
     Indication: DISSEMINATED TUBERCULOSIS
     Dosage: 200MG PER DAY
     Route: 048
     Dates: start: 20130524
  9. DIFLUCAN [Suspect]
     Indication: COMBINED IMMUNODEFICIENCY
     Dosage: 2ML PER DAY
     Route: 048
     Dates: start: 201302
  10. BACTRIM [Suspect]
     Indication: COMBINED IMMUNODEFICIENCY
     Route: 048
     Dates: start: 201302
  11. IMMUNOGLOBULIN HUMAN [Concomitant]
     Route: 065
     Dates: start: 201302

REACTIONS (8)
  - Respiratory arrest [Unknown]
  - Cardiac arrest [Fatal]
  - Dyskinesia [Unknown]
  - Abdominal distension [Unknown]
  - Flatulence [Unknown]
  - Oedema peripheral [Unknown]
  - Vomiting [Unknown]
  - Drug interaction [Unknown]
